FAERS Safety Report 13076937 (Version 1)
Quarter: 2016Q4

REPORT INFORMATION
  Report Type: Spontaneous
  Country: US (occurrence: US)
  Receive Date: 20161230
  Receipt Date: 20161230
  Transmission Date: 20170207
  Serious: Yes (Hospitalization, Other)
  Sender: FDA-Public Use
  Company Number: US-PFIZER INC-2016583518

PATIENT
  Age: 64 Year
  Sex: Female

DRUGS (1)
  1. AMIODARONE HCL [Suspect]
     Active Substance: AMIODARONE HYDROCHLORIDE
     Dosage: 400 MG, UNK
     Route: 065

REACTIONS (3)
  - Shock [Unknown]
  - Ventricular tachycardia [Unknown]
  - Hyperthyroidism [Unknown]
